FAERS Safety Report 8341161-1 (Version None)
Quarter: 2012Q2

REPORT INFORMATION
  Report Type: 
  Country: None (occurrence: None)
  Receive Date: 20120507
  Receipt Date: 20120501
  Transmission Date: 20120825
  Serious: No
  Sender: FDA-Public Use
  Company Number: US-PFIZER INC-2012032089

PATIENT
  Sex: Male

DRUGS (1)
  1. IBUPROFEN (ADVIL) [Suspect]
     Indication: INFLAMMATION
     Dosage: 800MG, 3X/DAY

REACTIONS (2)
  - DRUG INEFFECTIVE [None]
  - ABDOMINAL DISCOMFORT [None]
